FAERS Safety Report 8250698-5 (Version None)
Quarter: 2012Q2

REPORT INFORMATION
  Report Type: 
  Country: None (occurrence: None)
  Receive Date: 20120402
  Receipt Date: 20120326
  Transmission Date: 20120825
  Serious: Yes (Hospitalization)
  Sender: FDA-Public Use
  Company Number: FR-PFIZER INC-2004240650FR

PATIENT
  Age: 73 Year
  Sex: Male
  Weight: 80 kg

DRUGS (8)
  1. FLUOROURACIL [Suspect]
     Dosage: 4800 MG (2400 MG/M2), UNK
     Route: 042
  2. CETUXIMAB [Suspect]
     Dosage: EVERY 15 DAYS
     Route: 042
     Dates: end: 20040914
  3. FLUOROURACIL [Suspect]
     Dosage: 800 MG, UNK
     Route: 040
     Dates: start: 20040722
  4. LEUCOVORIN CALCIUM [Suspect]
     Indication: RECTAL CANCER
     Dosage: 400 MG (200 MG/M2), CYCLIC (EVERY 2 MONTHS)
     Route: 042
     Dates: start: 20030201
  5. CETUXIMAB [Suspect]
     Indication: RECTAL CANCER
     Dosage: 800 MG (400 MG/M2), CYCLIC (EVERY WEEK), FIRST COURSE
     Route: 042
     Dates: start: 20040722
  6. FLUOROURACIL [Suspect]
     Indication: RECTAL CANCER
     Dosage: 5.6 MG, CYCLIC (EVERY 2 MONTHS)
     Route: 042
     Dates: start: 20030201
  7. IRINOTECAN HCL [Suspect]
     Indication: RECTAL CANCER
     Dosage: 360 MG (180 MG/M2), CYCLIC (EVERY 2 MONTHS)
     Route: 042
     Dates: start: 20040722
  8. CETUXIMAB [Suspect]
     Dosage: 500 MG (250 MG/M2), EVERY WEEKS
     Route: 042

REACTIONS (3)
  - PAIN [None]
  - SKIN REACTION [None]
  - PRURITUS [None]
